FAERS Safety Report 7097712-0 (Version None)
Quarter: 2010Q4

REPORT INFORMATION
  Report Type: 
  Country: None (occurrence: None)
  Receive Date: 20101112
  Receipt Date: 20101102
  Transmission Date: 20110411
  Serious: No
  Sender: FDA-Public Use
  Company Number: US-BIOGENIDEC-2010BI039034

PATIENT
  Sex: Female
  Weight: 45 kg

DRUGS (7)
  1. AVONEX [Suspect]
     Indication: MULTIPLE SCLEROSIS
     Route: 030
  2. MARIJUANA [Concomitant]
  3. AMPYRA [Concomitant]
     Indication: GAIT DISTURBANCE
     Route: 048
     Dates: start: 20100820
  4. COPAXONE [Concomitant]
     Indication: MULTIPLE SCLEROSIS
     Dates: start: 20100723
  5. BACLOFEN [Concomitant]
  6. FLUOXETINE [Concomitant]
  7. DIAZEPAM [Concomitant]

REACTIONS (1)
  - LOSS OF CONSCIOUSNESS [None]
